FAERS Safety Report 19442562 (Version 1)
Quarter: 2021Q2

REPORT INFORMATION
  Report Type: Other
  Country: US (occurrence: US)
  Receive Date: 20210621
  Receipt Date: 20210621
  Transmission Date: 20210717
  Serious: No
  Sender: FDA-Public Use
  Company Number: US-ACORDA-ACO_168737_2021

PATIENT
  Sex: Male

DRUGS (2)
  1. INBRIJA [Suspect]
     Active Substance: LEVODOPA
     Indication: ON AND OFF PHENOMENON
  2. INBRIJA [Suspect]
     Active Substance: LEVODOPA
     Indication: PARKINSON^S DISEASE
     Dosage: 84 MILLIGRAM, PRN (NT TO EXCEED 5 DOSES PER DAY)
     Dates: start: 20201110

REACTIONS (4)
  - Dysphonia [Unknown]
  - Incorrect dose administered by device [Unknown]
  - Athetosis [Unknown]
  - Device occlusion [Unknown]
